FAERS Safety Report 20648245 (Version 2)
Quarter: 2022Q2

REPORT INFORMATION
  Report Type: Spontaneous
  Country: US (occurrence: US)
  Receive Date: 20220329
  Receipt Date: 20220404
  Transmission Date: 20220721
  Serious: Yes (Hospitalization, Other)
  Sender: FDA-Public Use
  Company Number: US-MLMSERVICE-20220318-3444003-1

PATIENT
  Age: 21 Year
  Sex: Female

DRUGS (1)
  1. MONTELUKAST [Suspect]
     Active Substance: MONTELUKAST SODIUM
     Indication: Mast cell activation syndrome
     Dosage: UNKNOWN
     Route: 065

REACTIONS (4)
  - Drug intolerance [Recovered/Resolved]
  - Cognitive disorder [Recovering/Resolving]
  - Mast cell activation syndrome [Unknown]
  - Condition aggravated [Unknown]
